FAERS Safety Report 8995705 (Version 1)
Quarter: 2013Q1

REPORT INFORMATION
  Report Type: Spontaneous
  Country: US (occurrence: US)
  Receive Date: 20130103
  Receipt Date: 20130103
  Transmission Date: 20140127
  Serious: No
  Sender: FDA-Public Use
  Company Number: US-ABBOTT-12P-163-0977649-00

PATIENT
  Sex: Female
  Weight: 60.84 kg

DRUGS (4)
  1. SYNTHROID [Suspect]
     Indication: HYPOTHYROIDISM
     Dates: start: 2007, end: 201208
  2. SYNTHROID [Suspect]
     Dosage: 100 MICROGRAMS DAILY
     Dates: start: 201208, end: 201209
  3. SYNTHROID [Suspect]
     Dosage: 75 MICROGRAMS DAILY
     Dates: start: 201209
  4. VERAPAMIL [Concomitant]
     Indication: BLOOD PRESSURE

REACTIONS (4)
  - Urine arsenic increased [Not Recovered/Not Resolved]
  - Asthenia [Not Recovered/Not Resolved]
  - Malaise [Not Recovered/Not Resolved]
  - Blood thyroid stimulating hormone decreased [Not Recovered/Not Resolved]
